FAERS Safety Report 8166625-5 (Version None)
Quarter: 2012Q1

REPORT INFORMATION
  Report Type: 
  Country: None (occurrence: None)
  Receive Date: 20120227
  Receipt Date: 20120213
  Transmission Date: 20120608
  Serious: Yes (Hospitalization)
  Sender: FDA-Public Use
  Company Number: US-MYLANLABS-2012S1003404

PATIENT
  Age: 22 Year
  Sex: Female

DRUGS (6)
  1. MYCOPHENOLATE MOFETIL [Suspect]
     Indication: IMMUNOSUPPRESSION
     Route: 065
  2. TACROLIMUS [Suspect]
     Indication: IMMUNOSUPPRESSION
     Route: 065
  3. FLUCONAZOLE [Suspect]
     Indication: MENINGITIS
     Dosage: 200 MG/DAY
     Route: 065
  4. FLUCYTOSINE [Suspect]
     Indication: MENINGITIS
     Route: 065
  5. PREDNISONE [Suspect]
     Indication: IMMUNOSUPPRESSION
     Route: 065
  6. AMPHOTERICIN B [Suspect]
     Indication: MENINGITIS
     Dosage: 5 MG/KG/DAY FOR 20 DAYS. LATER RECEIVED AGAIN FOR 2 WEEKS
     Route: 065

REACTIONS (2)
  - IMMUNE RECONSTITUTION SYNDROME [None]
  - MENINGITIS [None]
